FAERS Safety Report 6012875-3 (Version None)
Quarter: 2008Q4

REPORT INFORMATION
  Report Type: 
  Country: None (occurrence: None)
  Receive Date: 20081217
  Receipt Date: 20081212
  Transmission Date: 20090506
  Serious: Yes (Other)
  Sender: FDA-Public Use
  Company Number: ZYD-AE-08-166

PATIENT
  Age: 57 Year
  Sex: Male

DRUGS (2)
  1. RIBAVIRIN [Suspect]
     Indication: HEPATITIS C
     Dosage: 1000 MG - QD
     Dates: start: 20081002
  2. PEGASYS [Suspect]
     Indication: HEPATITIS C
     Dosage: 180 UG - 1XW
     Dates: start: 20081002

REACTIONS (4)
  - ASTHENIA [None]
  - FATIGUE [None]
  - NAUSEA [None]
  - PYREXIA [None]
